FAERS Safety Report 10028708 (Version 3)
Quarter: 2014Q2

REPORT INFORMATION
  Report Type: Report from Study
  Country: US (occurrence: US)
  Receive Date: 20140321
  Receipt Date: 20140515
  Transmission Date: 20141212
  Serious: Yes (Death, Life-Threatening, Other)
  Sender: FDA-Public Use
  Company Number: PHEH2014US005561

PATIENT
  Sex: Female

DRUGS (2)
  1. TOBI [Suspect]
     Indication: BRONCHIECTASIS
     Dosage: 300 MG, BID (TWICE DAILY, 28 DAYS EV)
     Route: 055
  2. MORPHINE [Concomitant]
     Dosage: UNK

REACTIONS (3)
  - Gallbladder cancer [Fatal]
  - Terminal state [Unknown]
  - Cholangiocarcinoma [Unknown]
